FAERS Safety Report 20206271 (Version 1)
Quarter: 2021Q4

REPORT INFORMATION
  Report Type: Spontaneous
  Country: FR (occurrence: FR)
  Receive Date: 20211220
  Receipt Date: 20211220
  Transmission Date: 20220303
  Serious: Yes (Hospitalization, Other)
  Sender: FDA-Public Use
  Company Number: FR-009507513-2111FRA000840

PATIENT
  Age: 68 Year
  Sex: Male

DRUGS (8)
  1. PEMETREXED [Suspect]
     Active Substance: PEMETREXED
     Indication: Squamous cell carcinoma of lung
     Dosage: UNK
  2. CISPLATIN [Suspect]
     Active Substance: CISPLATIN
     Indication: Squamous cell carcinoma of lung
     Dosage: UNK
     Dates: start: 20210727
  3. CISPLATIN [Suspect]
     Active Substance: CISPLATIN
     Dosage: UNK
     Dates: start: 20210915, end: 20210927
  4. KEYTRUDA [Suspect]
     Active Substance: PEMBROLIZUMAB
     Indication: Squamous cell carcinoma of lung
     Dosage: ONE INJECTION/CYCLE 1
     Dates: start: 20210727
  5. KEYTRUDA [Suspect]
     Active Substance: PEMBROLIZUMAB
     Dosage: ONE INJECTION
     Dates: start: 20210915
  6. KEYTRUDA [Suspect]
     Active Substance: PEMBROLIZUMAB
     Dosage: UNK
     Dates: start: 20210927
  7. TAXOL [Suspect]
     Active Substance: PACLITAXEL
     Indication: Squamous cell carcinoma of lung
     Dosage: UNK
     Dates: start: 20210727
  8. TAXOL [Suspect]
     Active Substance: PACLITAXEL
     Dosage: UNK
     Dates: start: 20210915, end: 20210927

REACTIONS (4)
  - Product use issue [Unknown]
  - Erythema multiforme [Recovering/Resolving]
  - Inappropriate schedule of product administration [Unknown]
  - Herpes virus infection [Unknown]

NARRATIVE: CASE EVENT DATE: 20210727
